FAERS Safety Report 8191130-X (Version None)
Quarter: 2012Q1

REPORT INFORMATION
  Report Type: 
  Country: None (occurrence: None)
  Receive Date: 20120307
  Receipt Date: 20120227
  Transmission Date: 20120608
  Serious: Yes (Hospitalization)
  Sender: FDA-Public Use
  Company Number: IT-GLAXOSMITHKLINE-B0784838A

PATIENT
  Sex: Male

DRUGS (3)
  1. FLUSPIRAL [Concomitant]
     Route: 055
  2. VENTOLIN [Suspect]
     Indication: DYSPNOEA
     Dosage: 600MCG PER DAY
     Route: 055
     Dates: start: 20110831, end: 20110905
  3. BOOSTRIX [Concomitant]
     Indication: PROPHYLAXIS
     Dates: start: 20110831, end: 20110831

REACTIONS (1)
  - STEVENS-JOHNSON SYNDROME [None]
